FAERS Safety Report 17219374 (Version 1)
Quarter: 2019Q4

REPORT INFORMATION
  Report Type: Spontaneous
  Country: US (occurrence: US)
  Receive Date: 20191209
  Receipt Date: 20191209
  Transmission Date: 20200122
  Serious: Yes (Life-Threatening, Hospitalization)
  Sender: FDA-Public Use
  Company Number: None

PATIENT
  Age: 77 Year
  Sex: Male

DRUGS (1)
  1. IBRUTINIB (IBRUTINIB 140MG CAP,ORAL) [Suspect]
     Active Substance: IBRUTINIB
     Indication: CHRONIC LYMPHOCYTIC LEUKAEMIA
     Route: 048
     Dates: start: 20181108, end: 20191116

REACTIONS (4)
  - Palpitations [None]
  - Pleural effusion [None]
  - Atrial fibrillation [None]
  - Neoplasm malignant [None]

NARRATIVE: CASE EVENT DATE: 20191116
